FAERS Safety Report 7283057-2 (Version None)
Quarter: 2011Q1

REPORT INFORMATION
  Report Type: 
  Country: None (occurrence: None)
  Receive Date: 20110209
  Receipt Date: 20110131
  Transmission Date: 20110831
  Serious: Yes (Other)
  Sender: FDA-Public Use
  Company Number: NZ-JNJFOC-HOAFF30333

PATIENT
  Age: 57 Year
  Sex: Male

DRUGS (4)
  1. DAKTARIN [Suspect]
     Route: 048
  2. NONE [Concomitant]
  3. DAKTARIN [Suspect]
     Indication: CANDIDIASIS
     Route: 048
  4. WARFARIN [Interacting]
     Indication: THROMBOSIS
     Route: 065

REACTIONS (3)
  - RETROPERITONEAL HAEMORRHAGE [None]
  - INTERNATIONAL NORMALISED RATIO INCREASED [None]
  - DRUG INTERACTION [None]
